FAERS Safety Report 4293187-5 (Version None)
Quarter: 2004Q1

REPORT INFORMATION
  Report Type: 
  Country: None (occurrence: None)
  Receive Date: 20040210
  Receipt Date: 20040128
  Transmission Date: 20041129
  Serious: No
  Sender: FDA-Public Use
  Company Number: 04H-163-0248927-00

PATIENT

DRUGS (4)
  1. TETRACAINE HYDROCHLORIDE 1% (PONTOCAINE) INJECTION, 2ML [Suspect]
     Indication: ANAESTHESIA
     Dosage: 2.5 MG, ONCE, INTRASPINAL
     Dates: start: 20040101, end: 20040101
  2. TETRACAINE HYDROCHLORIDE 1% (PONTOCAINE) INJECTION, 2 ML [Suspect]
  3. GLUCOSE INJECTION [Concomitant]
  4. ASTRAMORPH PF [Concomitant]

REACTIONS (2)
  - DYSPNOEA [None]
  - PARAESTHESIA [None]
